FAERS Safety Report 22916868 (Version 4)
Quarter: 2024Q1

REPORT INFORMATION
  Report Type: Report from Study
  Country: GB (occurrence: GB)
  Receive Date: 20230907
  Receipt Date: 20240115
  Transmission Date: 20240410
  Serious: Yes (Hospitalization, Other)
  Sender: FDA-Public Use
  Company Number: GB-002147023-NVSC2022GB023401

PATIENT
  Sex: Female

DRUGS (4)
  1. HYRIMOZ [Suspect]
     Active Substance: ADALIMUMAB-ADAZ
     Indication: Rheumatoid arthritis
     Dosage: 1 DOSAGE FORM, Q2W (FORTNIGHTLY); DOSE: 40 MG, EOW
     Route: 058
     Dates: start: 20210910
  2. HYRIMOZ [Suspect]
     Active Substance: ADALIMUMAB-ADAZ
     Dosage: 1 DOSAGE FORM, Q2W (40MG/0.8ML) EOW
     Route: 065
  3. HYRIMOZ [Suspect]
     Active Substance: ADALIMUMAB-ADAZ
     Dosage: 1 DOSAGE FORM, Q2W (FORTNIGHTLY); DOSE: 40 MG, EOW
     Route: 058
     Dates: start: 20210910
  4. HYRIMOZ [Suspect]
     Active Substance: ADALIMUMAB-ADAZ
     Dosage: 40 MG Q2W (EOW)
     Route: 058

REACTIONS (13)
  - COVID-19 [Unknown]
  - Urinary tract infection [Unknown]
  - Viral infection [Unknown]
  - Rheumatoid arthritis [Unknown]
  - Cellulitis [Unknown]
  - Cardiac disorder [Unknown]
  - Infection [Unknown]
  - Localised infection [Unknown]
  - Product dose omission issue [Unknown]
  - Wrong technique in device usage process [Unknown]
  - Migraine [Unknown]
  - Migraine [Recovered/Resolved]
  - Influenza [Unknown]
